FAERS Safety Report 5332517-X (Version None)
Quarter: 2007Q2

REPORT INFORMATION
  Report Type: 
  Country: None (occurrence: None)
  Receive Date: 20070518
  Receipt Date: 20070123
  Transmission Date: 20071010
  Serious: Yes (Other)
  Sender: FDA-Public Use
  Company Number: 156232ISR

PATIENT
  Age: 66 Year
  Sex: Male

DRUGS (1)
  1. METFORMIN HCL [Suspect]
     Indication: DIABETES MELLITUS
     Dosage: 1000 MG (500 MG,2 IN 1 D)
     Route: 048
     Dates: start: 20061221, end: 20061228

REACTIONS (2)
  - HAEMORRHAGE [None]
  - NAIL BED BLEEDING [None]
